FAERS Safety Report 6420962-0 (Version None)
Quarter: 2009Q4

REPORT INFORMATION
  Report Type: 
  Country: None (occurrence: None)
  Receive Date: 20091030
  Receipt Date: 20091027
  Transmission Date: 20100525
  Serious: Yes (Life-Threatening, Other)
  Sender: FDA-Public Use
  Company Number: DE-JNJFOC-20091007678

PATIENT
  Sex: Female
  Weight: 52 kg

DRUGS (6)
  1. REMINYL [Suspect]
     Route: 048
  2. REMINYL [Suspect]
     Indication: DRUG USE FOR UNKNOWN INDICATION
     Route: 048
  3. EUNERPAN [Concomitant]
     Route: 048
  4. ASPIRIN [Concomitant]
     Route: 048
  5. TORSEMIDE [Concomitant]
     Route: 048
  6. RAMIPRIL [Concomitant]
     Route: 048

REACTIONS (2)
  - CONVULSION [None]
  - STATUS EPILEPTICUS [None]
